FAERS Safety Report 24038762 (Version 1)
Quarter: 2024Q3

REPORT INFORMATION
  Report Type: Spontaneous
  Country: US (occurrence: US)
  Receive Date: 20240702
  Receipt Date: 20240702
  Transmission Date: 20241017
  Serious: No
  Sender: BRISTOL MYERS SQUIBB
  Company Number: US-BRISTOL-MYERS SQUIBB COMPANY-2024-105243

PATIENT
  Age: 66 Year
  Sex: Male

DRUGS (1)
  1. VIDAZA [Suspect]
     Active Substance: AZACITIDINE
     Indication: Acute myelomonocytic leukaemia
     Dosage: STRENGTH: 14 VIALS 100MG VIA;  FREQ : 150 MG DAY 1 TO  DAY 7 EVERY 4 WEEKS
     Dates: start: 20240228

REACTIONS (1)
  - Off label use [Unknown]
